FAERS Safety Report 4633196-7 (Version None)
Quarter: 2005Q2

REPORT INFORMATION
  Report Type: 
  Country: None (occurrence: None)
  Receive Date: 20050408
  Receipt Date: 20050330
  Transmission Date: 20051028
  Serious: Yes (Life-Threatening)
  Sender: FDA-Public Use
  Company Number: 2005053090

PATIENT
  Age: 76 Year
  Sex: Male
  Weight: 67 kg

DRUGS (3)
  1. GENOTONORM (SOMATROPIN) [Suspect]
     Indication: HYPOPITUITARISM
     Dosage: 0.4 MG (EVERY DAY), SUBCUTANEOUS
     Route: 058
     Dates: start: 20030506
  2. LEVOTHYROXINE SODIUM [Concomitant]
  3. TESTOSTERONE ENANTHATE [Concomitant]

REACTIONS (1)
  - LIPOSARCOMA [None]
